FAERS Safety Report 9639278 (Version 2)
Quarter: 2013Q4

REPORT INFORMATION
  Report Type: Spontaneous
  Country: US (occurrence: US)
  Receive Date: 20131022
  Receipt Date: 20131028
  Transmission Date: 20140711
  Serious: Yes (Hospitalization, Other)
  Sender: FDA-Public Use
  Company Number: US-BAXTER-2013BAX041124

PATIENT
  Age: 37 Year
  Sex: Male

DRUGS (2)
  1. DIANEAL LOW CALCIUM [Suspect]
     Indication: PERITONEAL DIALYSIS
     Route: 033
     Dates: end: 20130913
  2. DIANEAL LOW CALCIUM [Suspect]
     Route: 033
     Dates: start: 20131010

REACTIONS (3)
  - Umbilical hernia [Recovered/Resolved]
  - Procedural pain [Recovered/Resolved]
  - Asthenia [Unknown]
